FAERS Safety Report 18350208 (Version 1)
Quarter: 2020Q4

REPORT INFORMATION
  Report Type: Spontaneous
  Country: FR (occurrence: FR)
  Receive Date: 20201006
  Receipt Date: 20201006
  Transmission Date: 20210114
  Serious: Yes (Hospitalization)
  Sender: FDA-Public Use
  Company Number: NVSC2020FR266064

PATIENT
  Age: 88 Year
  Sex: Female
  Weight: 65 kg

DRUGS (1)
  1. ACLASTA [Suspect]
     Active Substance: ZOLEDRONIC ACID
     Indication: OSTEOPOROSIS
     Dosage: 50 MG, ONCE/SINGLE
     Route: 041
     Dates: start: 20200804, end: 20200804

REACTIONS (4)
  - Splenic artery thrombosis [Recovered/Resolved with Sequelae]
  - Splenic infarction [Recovered/Resolved with Sequelae]
  - Hepatic artery thrombosis [Recovered/Resolved with Sequelae]
  - Splenic vein thrombosis [Recovered/Resolved with Sequelae]

NARRATIVE: CASE EVENT DATE: 20200818
